FAERS Safety Report 18915750 (Version 2)
Quarter: 2021Q1

REPORT INFORMATION
  Report Type: Spontaneous
  Country: US (occurrence: US)
  Receive Date: 20210219
  Receipt Date: 20210301
  Transmission Date: 20210420
  Serious: Yes (Death, Life-Threatening, Other)
  Sender: FDA-Public Use
  Company Number: US-ADVANZ PHARMA-202102001343

PATIENT

DRUGS (1)
  1. HYDROXYCHLOROQUINE [Suspect]
     Active Substance: HYDROXYCHLOROQUINE
     Indication: FABRY^S DISEASE
     Dosage: UNKNOWN
     Route: 065

REACTIONS (4)
  - Myopathy [Fatal]
  - Off label use [Fatal]
  - Neuromyopathy [Fatal]
  - Toxicity to various agents [Fatal]
